FAERS Safety Report 9538996 (Version 2)
Quarter: 2013Q4

REPORT INFORMATION
  Report Type: Spontaneous
  Country: IT (occurrence: IT)
  Receive Date: 20130920
  Receipt Date: 20131001
  Transmission Date: 20140711
  Serious: Yes (Other)
  Sender: FDA-Public Use
  Company Number: IT-JNJFOC-20130908446

PATIENT
  Age: 38 Year
  Sex: Female

DRUGS (1)
  1. TOPAMAX [Suspect]
     Indication: PRODUCT USED FOR UNKNOWN INDICATION
     Route: 048
     Dates: start: 20130411, end: 20130411

REACTIONS (4)
  - Self injurious behaviour [Unknown]
  - Drug abuse [Unknown]
  - Intentional overdose [Unknown]
  - Somnolence [Recovering/Resolving]
